FAERS Safety Report 10222312 (Version 1)
Quarter: 2014Q2

REPORT INFORMATION
  Report Type: Spontaneous
  Country: FR (occurrence: FR)
  Receive Date: 20140606
  Receipt Date: 20140606
  Transmission Date: 20141212
  Serious: Yes (Life-Threatening, Hospitalization)
  Sender: FDA-Public Use
  Company Number: FR-PFIZER INC-2014152313

PATIENT
  Age: 84 Year
  Sex: Male

DRUGS (5)
  1. AMLOR [Suspect]
     Dosage: 100 MG, SINGLE
     Route: 048
     Dates: start: 20140425, end: 20140425
  2. ATORVASTATIN CALCIUM [Suspect]
     Dosage: 100 MG, SINGLE
     Route: 048
     Dates: start: 20140425, end: 20140425
  3. PREVISCAN [Suspect]
     Dosage: 1000 MG, SINGLE
     Route: 048
     Dates: start: 20140425, end: 20140425
  4. FLECAINE [Suspect]
     Dosage: 3200 MG, SINGLE
     Route: 048
     Dates: start: 20140425, end: 20140425
  5. RENITEC [Suspect]
     Dosage: 280 MG, SINGLE
     Route: 048
     Dates: start: 20140425, end: 20140425

REACTIONS (8)
  - Intentional overdose [Unknown]
  - Respiratory distress [Unknown]
  - Atrial tachycardia [Unknown]
  - Hypokalaemia [Recovered/Resolved]
  - Electrocardiogram QRS complex prolonged [Recovered/Resolved]
  - Hypocalcaemia [Unknown]
  - Prothrombin time ratio decreased [Unknown]
  - Thrombocytopenia [Unknown]
